FAERS Safety Report 14012403 (Version 1)
Quarter: 2017Q3

REPORT INFORMATION
  Report Type: Spontaneous
  Country: JP (occurrence: JP)
  Receive Date: 20170926
  Receipt Date: 20170926
  Transmission Date: 20171128
  Serious: Yes (Hospitalization)
  Sender: FDA-Public Use
  Company Number: JP-PFIZER INC-2017411766

PATIENT
  Age: 56 Year
  Sex: Male

DRUGS (3)
  1. LYRICA [Suspect]
     Active Substance: PREGABALIN
  2. TRAMCET [Suspect]
     Active Substance: ACETAMINOPHEN\TRAMADOL
  3. CELECOX [Suspect]
     Active Substance: CELECOXIB

REACTIONS (2)
  - Hepatic function abnormal [Recovered/Resolved]
  - Blood bilirubin increased [Unknown]
